FAERS Safety Report 7019541-6 (Version None)
Quarter: 2010Q3

REPORT INFORMATION
  Report Type: 
  Country: None (occurrence: None)
  Receive Date: 20100923
  Receipt Date: 20100909
  Transmission Date: 20110219
  Serious: Yes (Other)
  Sender: FDA-Public Use
  Company Number: 018629

PATIENT
  Sex: Female

DRUGS (1)
  1. CIMZIA [Suspect]
     Indication: CROHN'S DISEASE
     Dosage: 400 MG  1X/4 WEEKS; SUBCUTANEOUS
     Route: 058
     Dates: start: 20100131

REACTIONS (2)
  - DRUG DEPENDENCE [None]
  - PAIN [None]
